FAERS Safety Report 18942427 (Version 4)
Quarter: 2021Q2

REPORT INFORMATION
  Report Type: Spontaneous
  Country: CA (occurrence: CA)
  Receive Date: 20210225
  Receipt Date: 20210430
  Transmission Date: 20210717
  Serious: Yes (Hospitalization, Other)
  Sender: FDA-Public Use
  Company Number: CA-B.I. PHARMACEUTICALS,INC./RIDGEFIELD-2021-BI-084958

PATIENT
  Age: 11 Year
  Sex: Male

DRUGS (39)
  1. CLOBAZAM. [Suspect]
     Active Substance: CLOBAZAM
     Indication: CHILD ABUSE
     Dosage: 20 MG, BID; ORAL
     Route: 048
  2. MONTELUKAST [Suspect]
     Active Substance: MONTELUKAST SODIUM
     Indication: CHILD ABUSE
     Dosage: 10 MG, QD; ORAL
     Route: 048
  3. HYDROMORPHONE [Suspect]
     Active Substance: HYDROMORPHONE
     Indication: CHILD ABUSE
  4. GABAPENTIN. [Suspect]
     Active Substance: GABAPENTIN
     Indication: CHILD ABUSE
     Route: 048
  5. FLUOXETINE [Suspect]
     Active Substance: FLUOXETINE HYDROCHLORIDE
     Indication: CHILD ABUSE
     Dosage: 20 MG, QD; ORAL
     Route: 048
  6. MELATONIN [Suspect]
     Active Substance: MELATONIN
     Indication: SLEEP DEFICIT
     Dosage: 10 MG, QD; ORAL
     Route: 048
  7. LORAZEPAM. [Suspect]
     Active Substance: LORAZEPAM
     Indication: MUSCLE SPASMS
     Route: 060
  8. METHADONE [Suspect]
     Active Substance: METHADONE HYDROCHLORIDE
     Indication: CHILD ABUSE
     Route: 048
  9. VITAMIN C [Suspect]
     Active Substance: ASCORBIC ACID
     Indication: PRODUCT USED FOR UNKNOWN INDICATION
     Route: 048
  10. VITAMIN D3 [Suspect]
     Active Substance: CHOLECALCIFEROL
     Indication: CHILD ABUSE
     Route: 048
  11. METHOCARBAMOL;PARACETAMOL [Suspect]
     Active Substance: ACETAMINOPHEN\METHOCARBAMOL
     Indication: CHILD ABUSE
     Route: 048
  12. ARIPIPRAZOLE. [Suspect]
     Active Substance: ARIPIPRAZOLE
     Indication: CHILD ABUSE
     Dosage: 2 MG, TID; ORAL
     Route: 048
  13. CELECOXIB. [Suspect]
     Active Substance: CELECOXIB
     Indication: CHILD ABUSE
     Route: 048
  14. DIPHENHYDRAMINE. [Suspect]
     Active Substance: DIPHENHYDRAMINE
     Indication: CHILD ABUSE
  15. KETOROLAC [Suspect]
     Active Substance: KETOROLAC TROMETHAMINE
     Indication: PAIN
  16. MACROGOL 3350 [Suspect]
     Active Substance: POLYETHYLENE GLYCOL 3350
     Indication: CHILD ABUSE
     Route: 048
  17. PANTOPRAZOLE [Suspect]
     Active Substance: PANTOPRAZOLE
     Indication: CHILD ABUSE
     Route: 048
  18. RANITIDINE. [Suspect]
     Active Substance: RANITIDINE
     Indication: CHILD ABUSE
     Route: 048
  19. OMEGA 3 6 9 [FISH OIL] [Suspect]
     Active Substance: FISH OIL
     Indication: CHILD ABUSE
     Dosage: 200?400?1000 MG
     Route: 048
  20. BACLOFEN. [Suspect]
     Active Substance: BACLOFEN
     Indication: CHILD ABUSE
     Route: 048
  21. PHENOBARBITAL. [Suspect]
     Active Substance: PHENOBARBITAL
     Indication: CHILD ABUSE
     Dosage: 30 MG, BID; ORAL
     Route: 048
  22. FLUTICASONE FUROATE [Suspect]
     Active Substance: FLUTICASONE FUROATE
     Dosage: 2.0 DOSAGE FORMS
     Route: 055
  23. CATAPRESAN [CLONIDINE] [Suspect]
     Active Substance: CLONIDINE
     Indication: CHILD ABUSE
     Dosage: 0.5 MG, QD; ORAL
     Route: 048
  24. HYDROMORPHONE [Suspect]
     Active Substance: HYDROMORPHONE
     Indication: BACK PAIN
  25. LORAZEPAM. [Suspect]
     Active Substance: LORAZEPAM
     Indication: CHILD ABUSE
     Route: 060
  26. LORAZEPAM. [Suspect]
     Active Substance: LORAZEPAM
     Indication: SEIZURE
  27. LORAZEPAM. [Suspect]
     Active Substance: LORAZEPAM
     Indication: PAIN MANAGEMENT
  28. CELECOXIB. [Suspect]
     Active Substance: CELECOXIB
     Indication: PAIN MANAGEMENT
  29. HYDROXYCHLOROQUINE [Suspect]
     Active Substance: HYDROXYCHLOROQUINE
     Indication: CHILD ABUSE
     Dosage: 400 MG, QD; ORAL
     Route: 048
  30. MELATONIN [Suspect]
     Active Substance: MELATONIN
     Indication: CHILD ABUSE
  31. FLUTICASONE FUROATE [Suspect]
     Active Substance: FLUTICASONE FUROATE
     Indication: CHILD ABUSE
     Dosage: 1 DF, QD; INHALATION USE
     Route: 055
  32. DULCOLAX NOS [Suspect]
     Active Substance: BISACODYL OR DOCUSATE SODIUM
     Indication: CHILD ABUSE
     Dosage: PRN
     Route: 048
  33. DIPHENHYDRAMINE. [Suspect]
     Active Substance: DIPHENHYDRAMINE
     Indication: PRURITUS
     Dosage: 12.5 MG, Q6H; ORAL
     Route: 048
  34. KETOROLAC [Suspect]
     Active Substance: KETOROLAC TROMETHAMINE
     Indication: CHILD ABUSE
     Dosage: 20 MG, Q6H, PRN; ORAL
     Route: 048
  35. CATAPRESAN [CLONIDINE] [Suspect]
     Active Substance: CLONIDINE
     Dosage: 0.1 MG, QD; ORAL
     Route: 048
  36. PHENOBARBITAL. [Suspect]
     Active Substance: PHENOBARBITAL
     Indication: CHILD ABUSE
     Route: 048
  37. SALBUTAMOL [SALBUTAMOL SULFATE] [Suspect]
     Active Substance: ALBUTEROL SULFATE
     Indication: CHILD ABUSE
     Dosage: 100 MCG/ACTUATION, 2 PUFFS
     Route: 055
  38. GABAPENTIN. [Suspect]
     Active Substance: GABAPENTIN
     Indication: PAIN MANAGEMENT
  39. LEUPRORELIN ACETATE [Suspect]
     Active Substance: LEUPROLIDE ACETATE
     Indication: CHILD ABUSE
     Dosage: 0.25 MG MILLIGRAM(S) ( 7.5 MG MILLIGRAM(S) ),1 IN 30DAY; INTRAMUSCULAR
     Route: 030

REACTIONS (7)
  - Drug ineffective [Recovered/Resolved]
  - Drug dependence [Recovered/Resolved]
  - Victim of child abuse [Recovered/Resolved]
  - Intentional product misuse [Recovered/Resolved]
  - Drug abuse [Recovered/Resolved]
  - Respiratory depression [Recovered/Resolved]
  - Product prescribing error [Recovered/Resolved]
